FAERS Safety Report 7933309-5 (Version None)
Quarter: 2011Q4

REPORT INFORMATION
  Report Type: 
  Country: None (occurrence: None)
  Receive Date: 20111118
  Receipt Date: 20111110
  Transmission Date: 20120403
  Serious: Yes (Hospitalization)
  Sender: FDA-Public Use
  Company Number: 1000025394

PATIENT
  Age: 47 Year
  Sex: Female

DRUGS (7)
  1. VIIBRYD [Suspect]
     Indication: DEPRESSION
     Dosage: 10 MG (10 MG, 1 IN 1 D),ORAL, 20 MG (20 MG, 1 IN 1 D),ORAL
     Route: 048
     Dates: start: 20111029, end: 20111104
  2. VIIBRYD [Suspect]
     Indication: DEPRESSION
     Dosage: 10 MG (10 MG, 1 IN 1 D),ORAL, 20 MG (20 MG, 1 IN 1 D),ORAL
     Route: 048
     Dates: start: 20111022, end: 20111028
  3. VIIBRYD [Suspect]
     Indication: DEPRESSION
     Dosage: 40 MG (40 MG, 1 IN 1 D),ORAL
     Route: 048
     Dates: start: 20111105, end: 20111105
  4. MIRAPEX (PRAMIPEXOLE DIHYDROCHLORIDE)(PRAMIPEXOLE DIHYDROCHLORIDE) [Concomitant]
  5. NEXIUM [Concomitant]
  6. AMBIEN [Suspect]
  7. CRESTOR [Concomitant]

REACTIONS (2)
  - INTENTIONAL OVERDOSE [None]
  - SUICIDE ATTEMPT [None]
